FAERS Safety Report 21002957 (Version 16)
Quarter: 2023Q2

REPORT INFORMATION
  Report Type: Spontaneous
  Country: CA (occurrence: CA)
  Receive Date: 20220624
  Receipt Date: 20230615
  Transmission Date: 20230721
  Serious: Yes (Hospitalization, Other)
  Sender: FDA-Public Use
  Company Number: CA-CELLTRION INC.-2022CA008384

PATIENT

DRUGS (21)
  1. INFLECTRA [Suspect]
     Active Substance: INFLIXIMAB-DYYB
     Indication: Colitis ulcerative
     Dosage: 320 MG, (0,2,6, THEN EVERY 8 WEEKS)
     Route: 042
     Dates: start: 20220502, end: 20220502
  2. INFLECTRA [Suspect]
     Active Substance: INFLIXIMAB-DYYB
     Dosage: 5 MG/KG, Q 2,6, THEN EVERY 8 WEEKS
     Route: 042
     Dates: start: 20220516
  3. INFLECTRA [Suspect]
     Active Substance: INFLIXIMAB-DYYB
     Dosage: 5 MG/KG, Q 2,6, THEN EVERY 8 WEEKS
     Route: 042
     Dates: start: 20220516
  4. INFLECTRA [Suspect]
     Active Substance: INFLIXIMAB-DYYB
     Dosage: 5 MG/KG, Q 2,6, THEN EVERY 8 WEEKS
     Route: 042
     Dates: start: 20220516
  5. INFLECTRA [Suspect]
     Active Substance: INFLIXIMAB-DYYB
     Dosage: 5 MG/KG, Q 2,6, THEN EVERY 8 WEEKS
     Route: 042
     Dates: start: 20220516, end: 20221205
  6. INFLECTRA [Suspect]
     Active Substance: INFLIXIMAB-DYYB
     Dosage: 5 MG/KG, Q 2,6, THEN EVERY 8 WEEKS
     Route: 042
     Dates: start: 20220613
  7. INFLECTRA [Suspect]
     Active Substance: INFLIXIMAB-DYYB
     Dosage: 400 MG, (SUPPOSED TO RECEIVE 5 MG/KG) Q 2,6, THEN EVERY 8 WEEKS
     Route: 042
     Dates: start: 20221003
  8. INFLECTRA [Suspect]
     Active Substance: INFLIXIMAB-DYYB
     Dosage: 5 MG/KG, Q 2,6, THEN EVERY 8 WEEKS
     Route: 042
     Dates: start: 20221209
  9. INFLECTRA [Suspect]
     Active Substance: INFLIXIMAB-DYYB
     Dosage: 5 MG/KG, Q 2,6, THEN EVERY 8 WEEKS
     Route: 042
     Dates: start: 20221209
  10. INFLECTRA [Suspect]
     Active Substance: INFLIXIMAB-DYYB
     Dosage: 5 MG/KG, Q 2,6, THEN EVERY 8 WEEKS
     Route: 042
     Dates: start: 20230113
  11. INFLECTRA [Suspect]
     Active Substance: INFLIXIMAB-DYYB
     Dosage: 10 MG/KG, Q 0, 2, 6 WEEKS THEN EVERY 8 WEEKS,
     Route: 042
     Dates: start: 20230113, end: 20230410
  12. INFLECTRA [Suspect]
     Active Substance: INFLIXIMAB-DYYB
     Dosage: 870 MG, REINDUCTION WEEK 2 (REINDUCTION WEEK 0, 2, 6 THEN 8 WEEKS)
     Route: 042
     Dates: start: 20230127
  13. INFLECTRA [Suspect]
     Active Substance: INFLIXIMAB-DYYB
     Dosage: 875 MG, REINDUCTION WEEK 2 (REINDUCTION WEEK 0, 2, 6 THEN 8 WEEKS)
     Route: 042
     Dates: start: 20230208
  14. INFLECTRA [Suspect]
     Active Substance: INFLIXIMAB-DYYB
     Dosage: 875 MG, REINDUCTION WEEK 2 (REINDUCTION WEEK 0, 2, 6 THEN 8 WEEKS)
     Route: 042
     Dates: start: 20230208
  15. INFLECTRA [Suspect]
     Active Substance: INFLIXIMAB-DYYB
     Dosage: 875 MG, REINDUCTION WEEK 2 (REINDUCTION WEEK 0, 2, 6 THEN 8 WEEKS)
     Route: 042
     Dates: start: 20230208
  16. INFLECTRA [Suspect]
     Active Substance: INFLIXIMAB-DYYB
     Dosage: 875 MG, STAT DOSE
     Route: 042
     Dates: start: 20230208, end: 20230208
  17. INFLECTRA [Suspect]
     Active Substance: INFLIXIMAB-DYYB
     Dosage: 930 MG, AFTER 10 WEEKS AND 3 DAYS)
     Route: 042
     Dates: start: 20230410
  18. INFLECTRA [Suspect]
     Active Substance: INFLIXIMAB-DYYB
     Dosage: 930 MG AFTER 10 WEEKS AND 3 DAYS)
     Route: 042
     Dates: start: 20230410
  19. PREDNISONE [Concomitant]
     Active Substance: PREDNISONE
     Dosage: 1 DF, (DOSAGE INFO: UNKNOWN)
     Route: 065
     Dates: start: 2018
  20. VITAMIN D NOS [Concomitant]
     Active Substance: VITAMIN D NOS
     Dosage: UNK
  21. VITAMIN D NOS [Concomitant]
     Active Substance: VITAMIN D NOS
     Dosage: 1 DF

REACTIONS (12)
  - Condition aggravated [Not Recovered/Not Resolved]
  - Asthma [Unknown]
  - Weight increased [Not Recovered/Not Resolved]
  - Cough [Not Recovered/Not Resolved]
  - Blood pressure fluctuation [Not Recovered/Not Resolved]
  - Tachycardia [Not Recovered/Not Resolved]
  - Illness [Not Recovered/Not Resolved]
  - Nasopharyngitis [Unknown]
  - Off label use [Unknown]
  - Off label use [Unknown]
  - Intentional product use issue [Unknown]
  - Inappropriate schedule of product administration [Unknown]

NARRATIVE: CASE EVENT DATE: 20220516
